FAERS Safety Report 7811129-X (Version None)
Quarter: 2011Q4

REPORT INFORMATION
  Report Type: 
  Country: None (occurrence: None)
  Receive Date: 20111013
  Receipt Date: 20111003
  Transmission Date: 20120403
  Serious: Yes (Other)
  Sender: FDA-Public Use
  Company Number: PHEH2011US06140

PATIENT

DRUGS (1)
  1. AFINITOR [Suspect]
     Dosage: 10 MG ALTERNATING WITH 5 MG DAY
     Route: 048

REACTIONS (3)
  - ABDOMINAL MASS [None]
  - NEOPLASM MALIGNANT [None]
  - NEOPLASM PROGRESSION [None]
